FAERS Safety Report 8470749-2 (Version None)
Quarter: 2012Q2

REPORT INFORMATION
  Report Type: 
  Country: None (occurrence: None)
  Receive Date: 20120627
  Receipt Date: 20120619
  Transmission Date: 20120825
  Serious: Yes (Hospitalization)
  Sender: FDA-Public Use
  Company Number: US-BAYER-2012-018939

PATIENT
  Age: 18 Year
  Sex: Female
  Weight: 72.925 kg

DRUGS (14)
  1. CEFADROXIL [Concomitant]
     Dosage: 500 MG, UNK
     Route: 048
  2. PROMETHAZINE [Concomitant]
     Indication: NAUSEA
     Dosage: 25 MG, UNK
     Route: 048
  3. OXYCODONE HCL [Concomitant]
     Indication: PAIN
     Dosage: 7.5 MG/ 500MG
  4. PHENERGAN [Concomitant]
  5. SULFAMETHOXAZOLE AND TRIMETHOPRIM [Concomitant]
     Dosage: REGULAR STRENGTH
     Route: 048
  6. CELEBREX [Concomitant]
     Dosage: 200 MG, UNK
     Route: 048
  7. MEPERIDINE HCL [Concomitant]
     Dosage: 50 MG, UNK
     Route: 048
  8. AMOXICILLIN [Concomitant]
     Dosage: 500 MG, UNK
     Route: 048
  9. HYDROCODONE BITARTRATE [Concomitant]
     Indication: PAIN
     Route: 048
  10. METHOCARBAMOL [Concomitant]
     Indication: PREOPERATIVE CARE
     Dosage: 2 TABLETS 30 MINUTES BEFORE SURGERY, THEN ONE BY MOUTH EVERY 6 HOURS
     Route: 048
  11. YAZ [Suspect]
     Dosage: UNK
     Dates: start: 20080515, end: 20090601
  12. ONDANSETRON (ZOFRAN) [Concomitant]
     Indication: NAUSEA
     Dosage: 8 MG, UNK
     Route: 048
  13. IBUPROFEN [Concomitant]
     Dosage: 800 MG, UNK
     Route: 048
  14. ROBAXIN [Concomitant]

REACTIONS (4)
  - PROCEDURAL PAIN [None]
  - CHOLECYSTECTOMY [None]
  - PAIN [None]
  - CHOLECYSTITIS CHRONIC [None]
